FAERS Safety Report 22843528 (Version 3)
Quarter: 2024Q2

REPORT INFORMATION
  Report Type: Report from Study
  Country: US (occurrence: US)
  Receive Date: 20230821
  Receipt Date: 20240416
  Transmission Date: 20240716
  Serious: Yes (Hospitalization, Other)
  Sender: FDA-Public Use
  Company Number: US-MYLANLABS-2023M1051566

PATIENT
  Age: 60 Year
  Sex: Female
  Weight: 131.54 kg

DRUGS (2)
  1. GLATIRAMER ACETATE [Suspect]
     Active Substance: GLATIRAMER ACETATE
     Indication: Multiple sclerosis
     Dosage: 40 MILLIGRAM, 3XW
     Route: 058
  2. GLATIRAMER ACETATE [Suspect]
     Active Substance: GLATIRAMER ACETATE
     Dosage: 40 MILLIGRAM, 3XW
     Route: 065
     Dates: start: 20240410

REACTIONS (10)
  - Cerebrovascular accident [Unknown]
  - Limb discomfort [Unknown]
  - Weight decreased [Not Recovered/Not Resolved]
  - Dysarthria [Unknown]
  - Injection site erythema [Unknown]
  - Injection site mass [Unknown]
  - Product preparation error [Unknown]
  - Flushing [Unknown]
  - Dyspnoea [Unknown]
  - Palpitations [Unknown]

NARRATIVE: CASE EVENT DATE: 20240410
